FAERS Safety Report 5097326-8 (Version None)
Quarter: 2006Q3

REPORT INFORMATION
  Report Type: 
  Country: None (occurrence: None)
  Receive Date: 20060906
  Receipt Date: 20060802
  Transmission Date: 20061208
  Serious: Yes (Hospitalization)
  Sender: FDA-Public Use
  Company Number: JP-JPN-A200602934

PATIENT
  Age: 88 Year
  Sex: Female
  Weight: 40 kg

DRUGS (9)
  1. VALTREX [Suspect]
     Indication: HERPES ZOSTER
     Dosage: 1000MG TWICE PER DAY
     Route: 048
     Dates: start: 20060726, end: 20060728
  2. ARASENA-A [Concomitant]
     Indication: HERPES ZOSTER
     Route: 061
     Dates: start: 20060726, end: 20060728
  3. NORVASC [Concomitant]
     Indication: HYPERTENSION
     Dosage: 2.5MG PER DAY
     Route: 048
     Dates: start: 20060101
  4. PLETAL [Concomitant]
     Indication: CEREBRAL INFARCTION
     Dosage: 200MG PER DAY
     Route: 048
     Dates: start: 20060101
  5. SERMION [Concomitant]
     Indication: CEREBRAL INFARCTION
     Dosage: 15MG PER DAY
     Route: 048
     Dates: start: 20060101
  6. MARZULENE S [Concomitant]
     Indication: GASTRITIS
     Dosage: 1.5MG PER DAY
     Route: 048
     Dates: start: 20060101
  7. EXCELASE [Concomitant]
     Dosage: 1.2MG PER DAY
     Route: 048
     Dates: start: 20060101
  8. METHYLCOBAL [Concomitant]
     Indication: HERPES ZOSTER
     Dosage: 1500MG PER DAY
     Route: 048
     Dates: start: 20060101
  9. LOXONIN [Concomitant]
     Indication: HERPES ZOSTER
     Route: 048
     Dates: start: 20060726, end: 20060728

REACTIONS (8)
  - ANOREXIA [None]
  - BETA-N-ACETYL-D-GLUCOSAMINIDASE INCREASED [None]
  - BLOOD CREATININE INCREASED [None]
  - BLOOD UREA INCREASED [None]
  - DECREASED APPETITE [None]
  - MYOGLOBIN URINE PRESENT [None]
  - RENAL FAILURE ACUTE [None]
  - VOMITING [None]
